FAERS Safety Report 24815977 (Version 1)
Quarter: 2025Q1

REPORT INFORMATION
  Report Type: Spontaneous
  Country: US (occurrence: US)
  Receive Date: 20250107
  Receipt Date: 20250107
  Transmission Date: 20250409
  Serious: Yes (Other)
  Sender: BAYER HEALTHCARE LLC
  Company Number: US-BAYER-2025A002230

PATIENT
  Age: 83 Year
  Sex: Female

DRUGS (4)
  1. ASPIRIN [Suspect]
     Active Substance: ASPIRIN
  2. LISINOPRIL [Concomitant]
     Active Substance: LISINOPRIL
  3. MELOXICAM [Concomitant]
     Active Substance: MELOXICAM
  4. DONEPEZIL [Concomitant]
     Active Substance: DONEPEZIL

REACTIONS (1)
  - Duodenal ulcer perforation [None]
